FAERS Safety Report 6444176-3 (Version None)
Quarter: 2009Q4

REPORT INFORMATION
  Report Type: 
  Country: None (occurrence: None)
  Receive Date: 20091116
  Receipt Date: 20091116
  Transmission Date: 20100525
  Serious: Yes (Other)
  Sender: FDA-Public Use
  Company Number: None

PATIENT
  Age: 92 Year
  Sex: Female
  Weight: 40.3701 kg

DRUGS (1)
  1. RECLAST [Suspect]
     Indication: OSTEOPOROSIS
     Dosage: 1 YEAR INJECTION
     Dates: start: 20090806

REACTIONS (3)
  - GASTROINTESTINAL ULCER [None]
  - MALAISE [None]
  - VOMITING [None]
